FAERS Safety Report 12880231 (Version 1)
Quarter: 2016Q4

REPORT INFORMATION
  Report Type: Spontaneous
  Country: US (occurrence: US)
  Receive Date: 20161021
  Receipt Date: 20161021
  Transmission Date: 20170207
  Serious: No
  Sender: FDA-Public Use
  Company Number: None

PATIENT
  Age: 53 Year
  Sex: Male

DRUGS (1)
  1. HUMIRA [Suspect]
     Active Substance: ADALIMUMAB
     Indication: PRODUCT USED FOR UNKNOWN INDICATION
     Dosage: 40MG  EVERY OTHER WEEK SUBCUTANEOUS INJ
     Route: 058
     Dates: start: 20130826, end: 20160425

REACTIONS (2)
  - Therapy cessation [None]
  - Multiple sclerosis [None]

NARRATIVE: CASE EVENT DATE: 20160425
